FAERS Safety Report 6499177-6 (Version None)
Quarter: 2009Q4

REPORT INFORMATION
  Report Type: 
  Country: None (occurrence: None)
  Receive Date: 20091215
  Receipt Date: 20091209
  Transmission Date: 20100525
  Serious: Yes (Hospitalization, Other)
  Sender: FDA-Public Use
  Company Number: BR-ELI_LILLY_AND_COMPANY-BR200911003736

PATIENT
  Sex: Male
  Weight: 75 kg

DRUGS (4)
  1. HUMULIN N [Suspect]
     Indication: TYPE 1 DIABETES MELLITUS
     Dosage: 20 IU, EACH MORNING
     Route: 058
     Dates: start: 20091106
  2. HUMULIN N [Suspect]
     Dosage: 10 IU, EACH EVENING
     Route: 058
     Dates: start: 20091106
  3. AEROLIN [Concomitant]
     Indication: BRONCHITIS
     Dosage: 100 UG, UNK
  4. CAPTOPRIL [Concomitant]
     Indication: BLOOD PRESSURE
     Dosage: 25 MG, UNK

REACTIONS (5)
  - CHEST PAIN [None]
  - OEDEMA PERIPHERAL [None]
  - SKIN DISCOLOURATION [None]
  - THROMBOCYTOPENIA [None]
  - VASCULITIS [None]
